FAERS Safety Report 15370666 (Version 1)
Quarter: 2018Q3

REPORT INFORMATION
  Report Type: Spontaneous
  Country: SE (occurrence: SE)
  Receive Date: 20180911
  Receipt Date: 20180911
  Transmission Date: 20181010
  Serious: Yes (Congenital Anomaly)
  Sender: FDA-Public Use
  Company Number: SE-PFIZER INC-2018363496

PATIENT
  Age: 40 Year
  Sex: Female

DRUGS (5)
  1. ALVEDON [Concomitant]
     Active Substance: ACETAMINOPHEN
     Dates: start: 201709
  2. ORUDIS [Concomitant]
     Active Substance: KETOPROFEN
     Dates: start: 201710, end: 20180620
  3. PROPAVAN [Concomitant]
     Active Substance: PROPIOMAZINE
     Dates: start: 201708
  4. SERTRALINE HCL [Suspect]
     Active Substance: SERTRALINE HYDROCHLORIDE
     Indication: DEPRESSION
     Dosage: UNK
     Dates: start: 20180322, end: 20180701
  5. CITODON [CODEINE PHOSPHATE;PARACETAMOL] [Concomitant]
     Dates: start: 201708

REACTIONS (3)
  - Increased tendency to bruise [Not Recovered/Not Resolved]
  - Diarrhoea [Not Recovered/Not Resolved]
  - Colitis [Not Recovered/Not Resolved]

NARRATIVE: CASE EVENT DATE: 20180520
